FAERS Safety Report 4556781-X (Version None)
Quarter: 2005Q1

REPORT INFORMATION
  Report Type: 
  Country: None (occurrence: None)
  Receive Date: 20050120
  Receipt Date: 20041215
  Transmission Date: 20050727
  Serious: Yes (Life-Threatening)
  Sender: FDA-Public Use
  Company Number: JP-ROCHE-389378

PATIENT
  Age: 55 Year
  Sex: Male

DRUGS (27)
  1. MYCOPHENOLATE MOFETIL [Suspect]
     Route: 048
     Dates: start: 20010926, end: 20010926
  2. MYCOPHENOLATE MOFETIL [Suspect]
     Route: 048
     Dates: start: 20010927, end: 20011001
  3. MYCOPHENOLATE MOFETIL [Suspect]
     Route: 048
     Dates: start: 20011002, end: 20011002
  4. MYCOPHENOLATE MOFETIL [Suspect]
     Route: 048
     Dates: start: 20011003, end: 20041112
  5. MYCOPHENOLATE MOFETIL [Suspect]
     Route: 048
     Dates: start: 20011113, end: 20011120
  6. MYCOPHENOLATE MOFETIL [Suspect]
     Route: 048
     Dates: start: 20011121, end: 20020407
  7. MYCOPHENOLATE MOFETIL [Suspect]
     Route: 048
     Dates: start: 20020408, end: 20040307
  8. MYCOPHENOLATE MOFETIL [Suspect]
     Route: 048
     Dates: start: 20040310, end: 20040311
  9. PROGRAF [Suspect]
     Route: 048
     Dates: start: 20010926, end: 20020925
  10. PROGRAF [Suspect]
     Route: 048
     Dates: start: 20031022, end: 20040307
  11. PROGRAF [Suspect]
     Route: 048
     Dates: start: 20040310, end: 20040311
  12. PREDONINE [Concomitant]
     Dosage: DISCONTINUED BETWEEN 25 SEP 2002 AND 22 OCT 2003.
     Route: 048
     Dates: start: 20010926, end: 20040611
  13. AZATHIOPRINE [Concomitant]
     Route: 048
     Dates: start: 20011106, end: 20011112
  14. ADALAT CC [Concomitant]
     Route: 048
     Dates: start: 20010927, end: 20020925
  15. KALIMATE [Concomitant]
     Route: 054
     Dates: start: 20010927, end: 20011008
  16. PURSENNID [Concomitant]
     Route: 048
     Dates: start: 20010927, end: 20020925
  17. LAFUTIDINE [Concomitant]
     Dosage: REPORTED AS PROTECADIN.
     Route: 048
     Dates: start: 20010927, end: 20020925
  18. FUNGIZONE [Concomitant]
     Dosage: DISCONTINUED BETWEEN 25 SEP 02 AND 22 OCT 03.
     Route: 048
     Dates: start: 20010928, end: 20040307
  19. FUNGIZONE [Concomitant]
     Route: 048
     Dates: start: 20011001, end: 20011108
  20. FERO-GRADUMET [Concomitant]
     Dosage: DISCONTINUED BETWEEN 25 SEP 01 AND 22 OCT 03.
     Route: 048
     Dates: start: 20011017, end: 20040307
  21. ALTAT [Concomitant]
     Dosage: DISCONTINUED BETWEEN 25 SEP 02 AND 22 OCT 03.
     Route: 048
     Dates: start: 20011018, end: 20040307
  22. ADALAT [Concomitant]
     Route: 048
     Dates: start: 20031022, end: 20040611
  23. MUCOSTA [Concomitant]
     Route: 048
     Dates: start: 20031022, end: 20040307
  24. GASTER [Concomitant]
     Route: 048
     Dates: end: 20040510
  25. SOLU-MEDROL [Concomitant]
     Route: 042
     Dates: start: 20040506, end: 20040514
  26. LASIX [Concomitant]
     Route: 048
     Dates: start: 20040518, end: 20040611
  27. VALTREX [Concomitant]
     Route: 048
     Dates: start: 20040515, end: 20040525

REACTIONS (8)
  - ABSCESS DRAINAGE [None]
  - BRAIN NEOPLASM [None]
  - BRAIN OEDEMA [None]
  - CENTRAL NERVOUS SYSTEM LYMPHOMA [None]
  - DIFFUSE LARGE B-CELL LYMPHOMA [None]
  - GENERAL PHYSICAL HEALTH DETERIORATION [None]
  - HAEMODIALYSIS [None]
  - KIDNEY TRANSPLANT REJECTION [None]
